FAERS Safety Report 23990832 (Version 9)
Quarter: 2025Q1

REPORT INFORMATION
  Report Type: Report from Study
  Country: CN (occurrence: CN)
  Receive Date: 20240619
  Receipt Date: 20250120
  Transmission Date: 20250409
  Serious: Yes (Death, Other)
  Sender: PFIZER
  Company Number: CN-TAKEDA-2023TUS086154

PATIENT
  Age: 66 Year
  Sex: Male
  Weight: 67.5 kg

DRUGS (5)
  1. BRENTUXIMAB VEDOTIN [Suspect]
     Active Substance: BRENTUXIMAB VEDOTIN
     Indication: Angiocentric lymphoma
     Route: 042
     Dates: start: 20230724, end: 20230811
  2. VANCOMYCIN HYDROCHLORIDE [Concomitant]
     Active Substance: VANCOMYCIN HYDROCHLORIDE
     Indication: Pneumonia
     Route: 042
     Dates: start: 20230801, end: 20230801
  3. TIGECYCLINE [Concomitant]
     Active Substance: TIGECYCLINE
     Indication: Pneumonia
     Route: 042
     Dates: start: 20230727, end: 20230727
  4. EPIDERMAL GROWTH FACTOR [Concomitant]
     Indication: Blepharitis
     Route: 065
     Dates: start: 20230815, end: 20230822
  5. ACETAMINOPHEN [Concomitant]
     Active Substance: ACETAMINOPHEN
     Indication: Pyrexia
     Route: 048
     Dates: start: 20230707, end: 20230821

REACTIONS (6)
  - Pneumonia [Fatal]
  - Hepatic failure [Unknown]
  - Myelosuppression [Unknown]
  - Oral infection [Unknown]
  - Anaemia [Unknown]
  - Off label use [Recovered/Resolved]

NARRATIVE: CASE EVENT DATE: 20230724
